FAERS Safety Report 7850871-1 (Version None)
Quarter: 2011Q4

REPORT INFORMATION
  Report Type: 
  Country: None (occurrence: None)
  Receive Date: 20111026
  Receipt Date: 20111018
  Transmission Date: 20120403
  Serious: Yes (Death, Hospitalization)
  Sender: FDA-Public Use
  Company Number: DE-SANOFI-AVENTIS-2011SA069698

PATIENT
  Age: 65 Year
  Sex: Male

DRUGS (9)
  1. MEGESTAT [Concomitant]
     Dates: start: 20110801
  2. PANTOPRAZOLE SODIUM [Concomitant]
     Dates: start: 20110701
  3. DOCETAXEL [Suspect]
     Indication: NON-SMALL CELL LUNG CANCER
     Dosage: DAY 1 OF 21 DAYS CYCLE
     Route: 041
     Dates: start: 20110718, end: 20110718
  4. BLINDED THERAPY [Suspect]
     Indication: NON-SMALL CELL LUNG CANCER
     Dosage: DAY 1 OF 21 DAYS CYCLE
     Route: 041
     Dates: start: 20110718, end: 20110718
  5. BLINDED THERAPY [Suspect]
     Dosage: DAY 1 OF 21 DAYS CYCLE
     Route: 041
     Dates: start: 20110829, end: 20110829
  6. DEXAMETHASONE [Concomitant]
     Dates: start: 20110717
  7. DRONABINOL [Concomitant]
     Dates: start: 20110705
  8. DOCETAXEL [Suspect]
     Dosage: DAY 1 OF 21 DAYS CYCLE
     Route: 041
     Dates: start: 20110829, end: 20110829
  9. METOCLOPRAMIDE [Concomitant]
     Dates: start: 20110712

REACTIONS (3)
  - DYSPNOEA [None]
  - PNEUMONIA [None]
  - RESPIRATORY FAILURE [None]
